FAERS Safety Report 8565266-5 (Version None)
Quarter: 2012Q3

REPORT INFORMATION
  Report Type: 
  Country: None (occurrence: None)
  Receive Date: 20120724
  Receipt Date: 20120709
  Transmission Date: 20120928
  Serious: Yes (Other)
  Sender: FDA-Public Use
  Company Number: ENT 2012-0095

PATIENT
  Age: 73 Year
  Sex: Male

DRUGS (4)
  1. BI SIPROL [Concomitant]
  2. CABERGOLINE [Concomitant]
  3. TRERIEP [Concomitant]
  4. COMTAN [Suspect]
     Indication: PARKINSON'S DISEASE
     Dosage: ORAL
     Route: 048

REACTIONS (2)
  - PAIN IN EXTREMITY [None]
  - BLOOD CREATINE PHOSPHOKINASE INCREASED [None]
